FAERS Safety Report 7475619-4 (Version None)
Quarter: 2011Q2

REPORT INFORMATION
  Report Type: 
  Country: None (occurrence: None)
  Receive Date: 20110504
  Receipt Date: 20110419
  Transmission Date: 20111010
  Serious: Yes (Hospitalization, Other)
  Sender: FDA-Public Use
  Company Number: AUR-APL-2011-01330

PATIENT
  Age: 75 Year
  Sex: Male

DRUGS (11)
  1. TRAZODONE HCL [Suspect]
     Indication: CONFUSIONAL STATE
     Dosage: 300MG-QD
  2. TRAZODONE HCL [Suspect]
     Indication: CONFUSIONAL STATE
     Dosage: 100MG-DAILY
  3. ISOSORBIDE DINITRATE [Concomitant]
  4. LORAZEPAM [Concomitant]
  5. ASPIRIN [Concomitant]
  6. HALOPERIDOL [Concomitant]
  7. RISPERIDONE [Suspect]
     Indication: CONFUSIONAL STATE
     Dosage: 3 MG-QD
  8. TRAZODONE HCL [Suspect]
     Indication: CONFUSIONAL STATE
     Dosage: 150 MG-QD
  9. INDAPAMIDE [Concomitant]
  10. CARVEDILOL [Concomitant]
  11. CHLORPROMAZINE [Concomitant]

REACTIONS (15)
  - EPHELIDES [None]
  - EXTRAPYRAMIDAL DISORDER [None]
  - TOXICITY TO VARIOUS AGENTS [None]
  - PSYCHOMOTOR HYPERACTIVITY [None]
  - DISORIENTATION [None]
  - INCOHERENT [None]
  - PSYCHOMOTOR RETARDATION [None]
  - PARKINSONIAN GAIT [None]
  - CONDITION AGGRAVATED [None]
  - PARKINSON'S DISEASE [None]
  - CONFUSIONAL STATE [None]
  - VASCULAR DEMENTIA [None]
  - RESPIRATORY TRACT INFECTION [None]
  - PORPHYRIA NON-ACUTE [None]
  - TREMOR [None]
